FAERS Safety Report 25075579 (Version 1)
Quarter: 2025Q1

REPORT INFORMATION
  Report Type: Spontaneous
  Country: CN (occurrence: CN)
  Receive Date: 20250313
  Receipt Date: 20250313
  Transmission Date: 20250408
  Serious: Yes (Hospitalization)
  Sender: BEIGENE
  Company Number: CN-BEIGENE-BGN-2025-003822

PATIENT
  Age: 68 Year
  Weight: 68 kg

DRUGS (10)
  1. TISLELIZUMAB [Suspect]
     Active Substance: TISLELIZUMAB
     Indication: Bone neoplasm
  2. TISLELIZUMAB [Suspect]
     Active Substance: TISLELIZUMAB
     Indication: Malignant palate neoplasm
     Route: 041
  3. TISLELIZUMAB [Suspect]
     Active Substance: TISLELIZUMAB
     Route: 041
  4. TISLELIZUMAB [Suspect]
     Active Substance: TISLELIZUMAB
  5. CISPLATIN [Suspect]
     Active Substance: CISPLATIN
     Indication: Bone neoplasm
  6. CISPLATIN [Suspect]
     Active Substance: CISPLATIN
     Indication: Malignant palate neoplasm
  7. CISPLATIN [Suspect]
     Active Substance: CISPLATIN
  8. CISPLATIN [Suspect]
     Active Substance: CISPLATIN
  9. PACLITAXEL [Concomitant]
     Active Substance: PACLITAXEL
     Indication: Malignant palate neoplasm
  10. PACLITAXEL [Concomitant]
     Active Substance: PACLITAXEL
     Indication: Bone neoplasm

REACTIONS (1)
  - Hepatic enzyme increased [Recovering/Resolving]
